FAERS Safety Report 7014350-6 (Version None)
Quarter: 2010Q3

REPORT INFORMATION
  Report Type: 
  Country: None (occurrence: None)
  Receive Date: 20100924
  Receipt Date: 20100924
  Transmission Date: 20110219
  Serious: Yes (Life-Threatening)
  Sender: FDA-Public Use
  Company Number: None

PATIENT
  Age: 15 Year
  Sex: Male
  Weight: 49 kg

DRUGS (1)
  1. VANCOMYCIN [Suspect]
     Dosage: VANCOMYCIN 1.5 G DAILY IV
     Route: 042
     Dates: start: 20091115, end: 20091218

REACTIONS (1)
  - WHITE BLOOD CELL COUNT DECREASED [None]
